FAERS Safety Report 14699753 (Version 1)
Quarter: 2018Q1

REPORT INFORMATION
  Report Type: Report from Study
  Country: BR (occurrence: BR)
  Receive Date: 20180330
  Receipt Date: 20180330
  Transmission Date: 20180509
  Serious: Yes (Other)
  Sender: FDA-Public Use
  Company Number: BR-BRISTOL-MYERS SQUIBB COMPANY-BMS-2017-076226

PATIENT
  Age: 60 Year
  Sex: Female

DRUGS (3)
  1. XARELTO [Concomitant]
     Active Substance: RIVAROXABAN
     Indication: PRODUCT USED FOR UNKNOWN INDICATION
     Dosage: UNK DF, UNK
     Route: 065
  2. ABATACEPT [Suspect]
     Active Substance: ABATACEPT
     Indication: RHEUMATOID ARTHRITIS
     Dosage: 1 DF, QMO
     Route: 042
     Dates: end: 201706
  3. XARELTO [Concomitant]
     Active Substance: RIVAROXABAN
     Indication: ADVERSE EVENT
     Route: 065

REACTIONS (6)
  - Thrombosis [Unknown]
  - Pain in extremity [Unknown]
  - Osteoarthritis [Unknown]
  - Glucose tolerance impaired [Unknown]
  - Pneumonia [Unknown]
  - Insomnia [Unknown]

NARRATIVE: CASE EVENT DATE: 201710
